FAERS Safety Report 9468645 (Version 2)
Quarter: 2013Q4

REPORT INFORMATION
  Report Type: Spontaneous
  Country: CA (occurrence: CA)
  Receive Date: 20130821
  Receipt Date: 20131009
  Transmission Date: 20140711
  Serious: Yes (Death, Hospitalization)
  Sender: FDA-Public Use
  Company Number: CA-BRISTOL-MYERS SQUIBB COMPANY-19186998

PATIENT
  Age: 26 Year
  Sex: Male

DRUGS (25)
  1. AZACTAM [Suspect]
     Indication: PSEUDOMONAS INFECTION
     Dosage: 07JAN13 TO 24 JAN13
     Route: 042
     Dates: start: 20130731, end: 20130806
  2. AZACTAM [Suspect]
     Indication: CYSTIC FIBROSIS
     Dosage: 07JAN13 TO 24 JAN13
     Route: 042
     Dates: start: 20130731, end: 20130806
  3. AZITHROMYCIN [Concomitant]
  4. SALBUTAMOL [Concomitant]
  5. ATROVENT [Concomitant]
  6. PREDNISONE [Concomitant]
  7. VITAMIN D [Concomitant]
  8. CYKLOKAPRON [Concomitant]
  9. PAXIL [Concomitant]
  10. CLONAZEPAM [Concomitant]
  11. AMLODIPINE [Concomitant]
  12. MULTIVITAMINS [Concomitant]
  13. PULMOZYME [Concomitant]
  14. BECLOMETHASONE [Concomitant]
     Dosage: MDI
  15. PROPOFOL [Concomitant]
  16. GRAVOL [Concomitant]
  17. LORAZEPAM [Concomitant]
  18. TIGECYCLINE [Concomitant]
  19. LOXAPINE [Concomitant]
  20. FLAGYL [Concomitant]
  21. FENTANYL [Concomitant]
  22. MIDAZOLAM [Concomitant]
  23. FLUCONAZOLE [Concomitant]
  24. TOBRAMYCIN [Concomitant]
  25. PANCRELIPASE [Concomitant]

REACTIONS (1)
  - Respiratory failure [Fatal]
